FAERS Safety Report 6357735-3 (Version None)
Quarter: 2009Q3

REPORT INFORMATION
  Report Type: 
  Country: None (occurrence: None)
  Receive Date: 20090916
  Receipt Date: 20090903
  Transmission Date: 20100115
  Serious: Yes (Hospitalization, Other)
  Sender: FDA-Public Use
  Company Number: GB-CELGENEUS-167-20484-09090533

PATIENT
  Sex: Male
  Weight: 2.92 kg

DRUGS (13)
  1. INNOHEP [Suspect]
     Route: 064
     Dates: start: 20011119, end: 20011231
  2. INNOHEP [Suspect]
     Route: 064
     Dates: start: 20011231, end: 20020726
  3. PENICILLIN [Concomitant]
     Route: 064
  4. PARACETAMOL [Concomitant]
     Route: 064
     Dates: start: 20020609, end: 20020615
  5. BETAMETHASONE [Concomitant]
     Route: 064
     Dates: start: 20020613, end: 20020613
  6. AMOXICILLIN [Concomitant]
     Route: 064
     Dates: start: 20020609, end: 20020613
  7. RANITIDINE [Concomitant]
     Route: 064
     Dates: start: 20020613, end: 20020614
  8. MAXOLON [Concomitant]
     Route: 064
     Dates: start: 20020614, end: 20020614
  9. CRYOPRECIPITATED AHF [Concomitant]
     Route: 064
     Dates: start: 20020614, end: 20020614
  10. SODIUM CITRATE [Concomitant]
     Route: 064
     Dates: start: 20020614, end: 20020614
  11. HEAVY MARCAIN AND FENTANYL [Concomitant]
     Route: 064
     Dates: start: 20020614, end: 20020614
  12. AUGMENTIN [Concomitant]
     Route: 064
     Dates: start: 20020614, end: 20020614
  13. SYNTOCIN [Concomitant]
     Route: 064
     Dates: start: 20020614, end: 20020614

REACTIONS (2)
  - DRUG EXPOSURE DURING PREGNANCY [None]
  - JAUNDICE NEONATAL [None]
